FAERS Safety Report 5329538-X (Version None)
Quarter: 2007Q1

REPORT INFORMATION
  Report Type: 
  Country: None (occurrence: None)
  Receive Date: 20070223
  Receipt Date: 20060428
  Transmission Date: 20070707
  Serious: Yes (Disabling)
  Sender: FDA-Public Use
  Company Number: WAES 0604USA04320

PATIENT
  Age: 90 Year
  Sex: Female
  Weight: 70.7611 kg

DRUGS (1)
  1. ZOCOR [Suspect]
     Indication: BLOOD CHOLESTEROL
     Dosage: PO
     Route: 048

REACTIONS (1)
  - MYALGIA [None]
